FAERS Safety Report 7625628-7 (Version None)
Quarter: 2011Q3

REPORT INFORMATION
  Report Type: 
  Country: None (occurrence: None)
  Receive Date: 20110721
  Receipt Date: 20090211
  Transmission Date: 20111222
  Serious: Yes (Hospitalization, Other)
  Sender: FDA-Public Use
  Company Number: US-BAYER-200916321NA

PATIENT
  Age: 62 Year
  Sex: Male
  Weight: 108.84 kg

DRUGS (16)
  1. TRASYLOL [Suspect]
     Dosage: 200ML PUMP PRIME
     Route: 042
     Dates: start: 20060109, end: 20060109
  2. ANCEF [Concomitant]
     Dosage: UNK
     Dates: start: 20060109
  3. ZOSYN [Concomitant]
  4. MANNITOL [Concomitant]
     Dosage: 200
     Dates: start: 20060109
  5. DOBUTREX [Concomitant]
     Dosage: UNK
     Dates: start: 20060109
  6. DOPAMINE HCL [Concomitant]
  7. LIDOCAINE [Concomitant]
     Dosage: UNK
     Dates: start: 20060109
  8. SODIUM NITROPRUSSIDE [Concomitant]
  9. TRASYLOL [Suspect]
     Indication: PRODUCT USED FOR UNKNOWN INDICATION
     Dosage: 200ML; ILLEGIBLE INFUSION INFORMATION
     Dates: start: 20060109, end: 20060109
  10. ACETYLSALICYLIC ACID SRT [Concomitant]
  11. FENTANYL [Concomitant]
     Dosage: UNK
     Dates: start: 20060109
  12. DOBUTAMINE HCL [Concomitant]
  13. ATENOLOL [Concomitant]
  14. DEPAKOTE [Concomitant]
  15. VANCOMYCIN [Concomitant]
  16. HEPARIN [Concomitant]
     Dosage: 89 ML, UNK
     Dates: start: 20060109

REACTIONS (14)
  - STRESS [None]
  - CEREBROVASCULAR ACCIDENT [None]
  - PAIN [None]
  - SPEECH DISORDER [None]
  - RENAL INJURY [None]
  - UNEVALUABLE EVENT [None]
  - FEAR [None]
  - ANHEDONIA [None]
  - RENAL FAILURE [None]
  - RENAL IMPAIRMENT [None]
  - EMOTIONAL DISTRESS [None]
  - ANXIETY [None]
  - MULTI-ORGAN FAILURE [None]
  - INJURY [None]
